FAERS Safety Report 19300720 (Version 1)
Quarter: 2021Q2

REPORT INFORMATION
  Report Type: Spontaneous
  Country: US (occurrence: US)
  Receive Date: 20210525
  Receipt Date: 20210525
  Transmission Date: 20210717
  Serious: No
  Sender: FDA-Public Use
  Company Number: US-BAYER-2021-146735

PATIENT
  Age: 86 Year
  Sex: Male

DRUGS (3)
  1. ASPIRIN 81 [Concomitant]
     Active Substance: ASPIRIN
     Route: 048
  2. CLARITIN [Suspect]
     Active Substance: LORATADINE
     Indication: NASAL DISCOMFORT
     Dosage: 1 UNK
     Route: 048
     Dates: start: 20210524
  3. CLARITIN [Suspect]
     Active Substance: LORATADINE
     Indication: NASAL DISCOMFORT
     Dosage: 1 DF
     Route: 048
     Dates: start: 20210524

REACTIONS (4)
  - Drug ineffective [Recovered/Resolved]
  - Inappropriate schedule of product administration [None]
  - Incorrect dose administered [None]
  - Rhinorrhoea [Recovered/Resolved]

NARRATIVE: CASE EVENT DATE: 20210524
